FAERS Safety Report 9840692 (Version 1)
Quarter: 2014Q1

REPORT INFORMATION
  Report Type: Report from Study
  Country: CZ (occurrence: CZ)
  Receive Date: 20140124
  Receipt Date: 20140124
  Transmission Date: 20141002
  Serious: Yes (Hospitalization)
  Sender: FDA-Public Use
  Company Number: CZ-BAYER-2014-009437

PATIENT
  Age: 39 Year
  Sex: Female
  Weight: 73.92 kg

DRUGS (2)
  1. MIRENA [Suspect]
     Indication: CONTRACEPTION
     Dosage: 20 MCG/24HR, QD
     Route: 015
     Dates: start: 20130919, end: 201312
  2. DALACIN [CLINDAMYCIN HYDROCHLORIDE] [Concomitant]
     Indication: ACTINOMYCOSIS
     Dosage: DAILY DOSE 300 MG
     Route: 048

REACTIONS (4)
  - Ovarian neoplasm [Recovered/Resolved]
  - Appendicitis [Recovered/Resolved]
  - Post procedural haematoma [Recovered/Resolved]
  - Pyrexia [Recovered/Resolved]
